FAERS Safety Report 9387925 (Version 1)
Quarter: 2013Q3

REPORT INFORMATION
  Report Type: Spontaneous
  Country: US (occurrence: US)
  Receive Date: 20130708
  Receipt Date: 20130708
  Transmission Date: 20140515
  Serious: No
  Sender: FDA-Public Use
  Company Number: US-BAYER-2013-083086

PATIENT
  Age: 77 Year
  Sex: Male
  Weight: 96.15 kg

DRUGS (5)
  1. ALEVE CAPLET [Suspect]
     Indication: ARTHRITIS
     Dosage: 2 DF, BID
     Route: 048
     Dates: start: 20130624
  2. GLIMEPIRIDE [Concomitant]
  3. LIPITOR [Concomitant]
  4. BAYER ASPIRIN REGIMEN ADULT LOW STRENGTH [Concomitant]
  5. JANUMET [Concomitant]

REACTIONS (2)
  - Drug ineffective [None]
  - Extra dose administered [None]
